FAERS Safety Report 16607939 (Version 1)
Quarter: 2019Q3

REPORT INFORMATION
  Report Type: Spontaneous
  Country: JP (occurrence: JP)
  Receive Date: 20190722
  Receipt Date: 20190722
  Transmission Date: 20191004
  Serious: Yes (Hospitalization, Other)
  Sender: FDA-Public Use
  Company Number: JP-GLAXOSMITHKLINE-JP2019JPN129086

PATIENT
  Age: 77 Year
  Sex: Male

DRUGS (1)
  1. ZOVIRAX [Suspect]
     Active Substance: ACYCLOVIR
     Indication: HERPES ZOSTER
     Dosage: 800 MG, QD
     Route: 048
     Dates: start: 201811

REACTIONS (11)
  - Altered state of consciousness [Unknown]
  - Hallucination, visual [Unknown]
  - Myoclonus [Recovered/Resolved]
  - Dysstasia [Unknown]
  - Dyskinesia [Unknown]
  - Disorientation [Recovered/Resolved]
  - Herpes zoster meningoencephalitis [Unknown]
  - Abnormal behaviour [Unknown]
  - Speech disorder [Recovering/Resolving]
  - Hallucination, auditory [Unknown]
  - Toxic encephalopathy [Unknown]

NARRATIVE: CASE EVENT DATE: 2018
